FAERS Safety Report 5649535-4 (Version None)
Quarter: 2008Q1

REPORT INFORMATION
  Report Type: 
  Country: None (occurrence: None)
  Receive Date: 20080304
  Receipt Date: 20080221
  Transmission Date: 20080703
  Serious: Yes (Hospitalization)
  Sender: FDA-Public Use
  Company Number: FR-SANOFI-SYNTHELABO-A01200801231

PATIENT
  Age: 43 Year
  Sex: Female

DRUGS (1)
  1. NIVAQUINE [Suspect]
     Indication: SYSTEMIC LUPUS ERYTHEMATOSUS
     Route: 048
     Dates: start: 20031101, end: 20070101

REACTIONS (4)
  - ACCIDENTAL OVERDOSE [None]
  - ATRIOVENTRICULAR BLOCK COMPLETE [None]
  - CARDIOTOXICITY [None]
  - SYNCOPE [None]
